FAERS Safety Report 5948668-2 (Version None)
Quarter: 2008Q4

REPORT INFORMATION
  Report Type: 
  Country: None (occurrence: None)
  Receive Date: 20081111
  Receipt Date: 20081106
  Transmission Date: 20090506
  Serious: Yes (Death, Life-Threatening, Hospitalization, Other)
  Sender: FDA-Public Use
  Company Number: IL-BRISTOL-MYERS SQUIBB COMPANY-14089643

PATIENT
  Age: 72 Year
  Sex: Female

DRUGS (8)
  1. BLINDED: APIXABAN [Suspect]
     Indication: THROMBOSIS PROPHYLAXIS
     Route: 048
     Dates: start: 20080129, end: 20080224
  2. BLINDED: ENOXAPARIN [Suspect]
     Indication: THROMBOSIS PROPHYLAXIS
     Dosage: THERAPY DATES-29JAN08-4FEB08(40MG),5FEB08-11FEB08(40MG).
     Route: 058
     Dates: start: 20080129, end: 20080211
  3. BLINDED: PLACEBO [Suspect]
     Indication: THROMBOSIS PROPHYLAXIS
     Dosage: ROUTE-SUBCUTANEOUS(ENOXAPARIN)29JAN08-4FEB08,5FEB08-11FEB08.
     Dates: start: 20080129, end: 20080201
  4. OXAZEPAM [Suspect]
  5. PREDNISONE [Concomitant]
     Dates: start: 20050323
  6. RANITIDINE [Concomitant]
     Dates: start: 20080223
  7. THEOPHYLLINE [Concomitant]
     Dates: end: 20080224
  8. OXAZEPAM [Concomitant]
     Dates: start: 19980101

REACTIONS (4)
  - INTENTIONAL OVERDOSE [None]
  - LUNG DISORDER [None]
  - RESPIRATORY FAILURE [None]
  - SUICIDE ATTEMPT [None]
